FAERS Safety Report 8554188-1 (Version None)
Quarter: 2012Q3

REPORT INFORMATION
  Report Type: 
  Country: None (occurrence: None)
  Receive Date: 20120731
  Receipt Date: 20120726
  Transmission Date: 20120928
  Serious: No
  Sender: FDA-Public Use
  Company Number: US-ELI_LILLY_AND_COMPANY-US201207008762

PATIENT
  Sex: Male

DRUGS (2)
  1. ADCIRCA [Suspect]
     Indication: PULMONARY HYPERTENSION
     Dosage: 20 MG, QD
     Route: 065
     Dates: start: 20120723
  2. ADCIRCA [Suspect]
     Dosage: 10 MG, QD
     Route: 065
     Dates: end: 20120725

REACTIONS (6)
  - VISUAL IMPAIRMENT [None]
  - PARAESTHESIA [None]
  - HEADACHE [None]
  - DYSPNOEA [None]
  - DIZZINESS [None]
  - HYPOAESTHESIA [None]
